FAERS Safety Report 14079817 (Version 3)
Quarter: 2018Q4

REPORT INFORMATION
  Report Type: Report from Study
  Country: DE (occurrence: DE)
  Receive Date: 20171012
  Receipt Date: 20181001
  Transmission Date: 20190204
  Serious: Yes (Hospitalization)
  Sender: FDA-Public Use
  Company Number: PHHY2017DE146815

PATIENT
  Age: 79 Year
  Sex: Male
  Weight: 84 kg

DRUGS (8)
  1. RAMIPRIL. [Concomitant]
     Active Substance: RAMIPRIL
     Indication: HYPERTENSION
     Dosage: 0.5 DF, BID
     Route: 065
     Dates: start: 2012
  2. EXJADE [Suspect]
     Active Substance: DEFERASIROX
     Indication: IRON OVERLOAD
     Dosage: 3 DF QD, (17.8 MG/KG/D = 3 INTO 500 MG/D)
     Route: 065
     Dates: start: 20160425, end: 20170403
  3. BISOPROLOL [Concomitant]
     Active Substance: BISOPROLOL
     Indication: HYPERTENSION
     Dosage: 0.5 DF, QD
     Route: 065
  4. IBUPROFEN. [Concomitant]
     Active Substance: IBUPROFEN
     Indication: CHEST PAIN
     Dosage: 400 OT, QD (ON DEMAND)
     Route: 065
     Dates: start: 20160831
  5. EXJADE [Suspect]
     Active Substance: DEFERASIROX
     Dosage: 4 DF QD, (23.80 MG/KG /D = 4 INTO 500 MG/D)
     Route: 065
     Dates: start: 20170404, end: 20170922
  6. IBUPROFEN. [Concomitant]
     Active Substance: IBUPROFEN
     Indication: CHEST PAIN
  7. TORASEMIDE [Concomitant]
     Active Substance: TORSEMIDE
     Indication: PRODUCT USED FOR UNKNOWN INDICATION
     Dosage: 0.5 DF, QD
     Route: 065
  8. ALLOPURINOL. [Concomitant]
     Active Substance: ALLOPURINOL
     Indication: PRODUCT USED FOR UNKNOWN INDICATION
     Dosage: 300 OT, QD (1 INTO 1)
     Route: 065
     Dates: start: 20160421

REACTIONS (3)
  - Dehydration [Recovered/Resolved]
  - Diarrhoea [Not Recovered/Not Resolved]
  - Segmental diverticular colitis [Recovered/Resolved]

NARRATIVE: CASE EVENT DATE: 20170811
